FAERS Safety Report 7952393-6 (Version None)
Quarter: 2011Q4

REPORT INFORMATION
  Report Type: 
  Country: None (occurrence: None)
  Receive Date: 20111201
  Receipt Date: 20111122
  Transmission Date: 20120403
  Serious: Yes (Hospitalization)
  Sender: FDA-Public Use
  Company Number: US-GLAXOSMITHKLINE-A0877704A

PATIENT
  Sex: Female

DRUGS (2)
  1. AVANDIA [Suspect]
     Indication: DIABETES MELLITUS
     Dosage: 4MG TWICE PER DAY
     Route: 048
     Dates: start: 20010101, end: 20070101
  2. AVANDAMET [Suspect]
     Indication: DIABETES MELLITUS

REACTIONS (5)
  - REFUSAL OF TREATMENT BY PATIENT [None]
  - MENTAL STATUS CHANGES [None]
  - CEREBROVASCULAR ACCIDENT [None]
  - PALPITATIONS [None]
  - DIABETES MELLITUS INADEQUATE CONTROL [None]
